FAERS Safety Report 11813709 (Version 2)
Quarter: 2015Q4

REPORT INFORMATION
  Report Type: Spontaneous
  Country: US (occurrence: US)
  Receive Date: 20151209
  Receipt Date: 20151210
  Transmission Date: 20160305
  Serious: Yes (Other)
  Sender: FDA-Public Use
  Company Number: US-BAYER-2015-484958

PATIENT
  Age: 70 Year
  Sex: Male
  Weight: 72.56 kg

DRUGS (1)
  1. MIRALAX [Suspect]
     Active Substance: POLYETHYLENE GLYCOL 3350
     Indication: CONSTIPATION
     Dosage: 0.5-1 DF, QD
     Route: 048
     Dates: start: 2007

REACTIONS (4)
  - Spinal operation [None]
  - Neck surgery [None]
  - Product use issue [Unknown]
  - Spinal operation [None]

NARRATIVE: CASE EVENT DATE: 2007
